FAERS Safety Report 21997654 (Version 3)
Quarter: 2023Q1

REPORT INFORMATION
  Report Type: Report from Study
  Country: US (occurrence: US)
  Receive Date: 20230216
  Receipt Date: 20230222
  Transmission Date: 20230417
  Serious: Yes (Hospitalization)
  Sender: FDA-Public Use
  Company Number: US-ABBVIE-4309269

PATIENT
  Sex: Male

DRUGS (11)
  1. DUOPA [Suspect]
     Active Substance: CARBIDOPA\LEVODOPA
     Indication: Parkinson^s disease
     Route: 050
     Dates: start: 20220412
  2. DUOPA [Suspect]
     Active Substance: CARBIDOPA\LEVODOPA
  3. LORAZEPAM [Concomitant]
     Active Substance: LORAZEPAM
     Indication: Anxiety
     Route: 048
  4. CARBIDOPA\LEVODOPA [Concomitant]
     Active Substance: CARBIDOPA\LEVODOPA
     Indication: Product used for unknown indication
     Dosage: 50MG-200MG, ER
     Route: 048
  5. FINASTERIDE EG [Concomitant]
     Indication: Product used for unknown indication
     Route: 048
  6. FLUOXETINE [Concomitant]
     Active Substance: FLUOXETINE HYDROCHLORIDE
     Indication: Anxiety
     Route: 048
  7. CLONAZEPAM-R [Concomitant]
     Indication: Product used for unknown indication
     Route: 048
  8. IBUPROFEN [Concomitant]
     Active Substance: IBUPROFEN
     Indication: Back pain
     Route: 048
  9. OLANZAPINE [Concomitant]
     Active Substance: OLANZAPINE
     Indication: Delusional disorder, unspecified type
     Route: 048
  10. LAMICTAL [Concomitant]
     Active Substance: LAMOTRIGINE
     Indication: Product used for unknown indication
     Route: 048
  11. CARBIDOPA\LEVODOPA [Concomitant]
     Active Substance: CARBIDOPA\LEVODOPA
     Indication: Product used for unknown indication
     Dosage: 25MG-100MG
     Route: 048

REACTIONS (8)
  - Hospitalisation [Recovered/Resolved]
  - Fall [Unknown]
  - Kidney infection [Recovered/Resolved]
  - Mobility decreased [Recovered/Resolved]
  - Device breakage [Recovered/Resolved]
  - Delusional disorder, unspecified type [Recovering/Resolving]
  - Bradykinesia [Recovered/Resolved]
  - Dehydration [Recovered/Resolved]

NARRATIVE: CASE EVENT DATE: 20230101
